FAERS Safety Report 5466925-3 (Version None)
Quarter: 2007Q3

REPORT INFORMATION
  Report Type: 
  Country: None (occurrence: None)
  Receive Date: 20070920
  Receipt Date: 20070904
  Transmission Date: 20080115
  Serious: Yes (Life-Threatening, Other)
  Sender: FDA-Public Use
  Company Number: DSA_30536_2007

PATIENT

DRUGS (3)
  1. TAVOR /00273201/ (TAVOR - LORAZEPAM) 1 DF [Suspect]
     Dosage: (10 DF 1X NOT THE PRESCRIBED AMOUNT ORAL)
     Dates: start: 20070903, end: 20070903
  2. ALCOHOLIC FOOD/ENJOYMENT FOOD [Suspect]
     Dosage: ORAL
     Route: 048
     Dates: start: 20070903, end: 20070903
  3. DIAZEPAM [Suspect]
     Dosage: (NOT THE PRESCRIBED AMOUNT ORAL)
     Route: 048
     Dates: start: 20070903, end: 20070903

REACTIONS (3)
  - OVERDOSE [None]
  - SPEECH DISORDER [None]
  - SUICIDE ATTEMPT [None]
